FAERS Safety Report 6303421-5 (Version None)
Quarter: 2009Q3

REPORT INFORMATION
  Report Type: 
  Country: None (occurrence: None)
  Receive Date: 20090810
  Receipt Date: 20090804
  Transmission Date: 20100115
  Serious: Yes (Disabling)
  Sender: FDA-Public Use
  Company Number: DE-PFIZER INC-2009220040

PATIENT
  Age: 59 Year

DRUGS (1)
  1. CAVERJECT IMPULSE [Suspect]
     Dosage: 20 UG, UNK
     Route: 017

REACTIONS (2)
  - DISABILITY [None]
  - DRUG INEFFECTIVE [None]
